FAERS Safety Report 13658531 (Version 2)
Quarter: 2017Q3

REPORT INFORMATION
  Report Type: Spontaneous
  Country: US (occurrence: US)
  Receive Date: 20170616
  Receipt Date: 20170824
  Transmission Date: 20171127
  Serious: Yes (Hospitalization, Other)
  Sender: FDA-Public Use
  Company Number: US-PFIZER INC-2017262524

PATIENT
  Age: 67 Year
  Sex: Female

DRUGS (3)
  1. FASLODEX [Concomitant]
     Active Substance: FULVESTRANT
     Dosage: UNK
  2. IBRANCE [Suspect]
     Active Substance: PALBOCICLIB
     Dosage: 100 MG, 1X/DAY
     Dates: start: 201706
  3. IBRANCE [Suspect]
     Active Substance: PALBOCICLIB
     Indication: BREAST CANCER METASTATIC
     Dosage: 100 MG, CYCLIC, QD (21 DAYS ON /7DAYS OFF)
     Route: 048
     Dates: start: 20170609

REACTIONS (5)
  - Fatigue [Recovered/Resolved]
  - Dyspnoea [Unknown]
  - Pneumonia bacterial [Unknown]
  - Cough [Unknown]
  - Mental impairment [Unknown]
